FAERS Safety Report 7229923-5 (Version None)
Quarter: 2011Q1

REPORT INFORMATION
  Report Type: 
  Country: None (occurrence: None)
  Receive Date: 20110117
  Receipt Date: 20110113
  Transmission Date: 20110831
  Serious: Yes (Other)
  Sender: FDA-Public Use
  Company Number: GB-ABBOTT-11P-167-0697243-00

PATIENT
  Age: 41 Year
  Sex: Male
  Weight: 74.3 kg

DRUGS (4)
  1. PREDNISOLONE [Concomitant]
     Indication: PRODUCT USED FOR UNKNOWN INDICATION
  2. HUMIRA [Suspect]
     Indication: CROHN'S DISEASE
     Route: 058
     Dates: start: 20101104, end: 20101220
  3. AZATHIOPRINE [Concomitant]
     Indication: PRODUCT USED FOR UNKNOWN INDICATION
  4. ADCAL-D3 [Concomitant]
     Indication: PRODUCT USED FOR UNKNOWN INDICATION

REACTIONS (7)
  - LIP SWELLING [None]
  - VOMITING [None]
  - HEADACHE [None]
  - LETHARGY [None]
  - PRURITUS GENERALISED [None]
  - OEDEMA PERIPHERAL [None]
  - DYSPNOEA [None]
